FAERS Safety Report 26214586 (Version 1)
Quarter: 2025Q4

REPORT INFORMATION
  Report Type: Spontaneous
  Country: US (occurrence: US)
  Receive Date: 20251230
  Receipt Date: 20251230
  Transmission Date: 20260118
  Serious: Yes (Hospitalization)
  Sender: MYLAN
  Company Number: US-MYLANLABS-2025M1111111

PATIENT
  Age: 88 Year
  Sex: Female

DRUGS (1)
  1. METHOTREXATE [Suspect]
     Active Substance: METHOTREXATE
     Indication: Iritis
     Dosage: UNK

REACTIONS (6)
  - Toxicity to various agents [Recovering/Resolving]
  - Pulmonary toxicity [Recovering/Resolving]
  - Acute respiratory failure [Recovering/Resolving]
  - Interstitial lung disease [Recovering/Resolving]
  - Pulmonary hypertension [Recovering/Resolving]
  - Product prescribing issue [Unknown]
